FAERS Safety Report 26203722 (Version 1)
Quarter: 2025Q4

REPORT INFORMATION
  Report Type: Spontaneous
  Country: EU (occurrence: EU)
  Receive Date: 20251226
  Receipt Date: 20251226
  Transmission Date: 20260117
  Serious: Yes (Death, Other)
  Sender: PURDUE
  Company Number: EU-ROCHE-10000413136

PATIENT
  Sex: Male

DRUGS (2)
  1. MORPHINE SULFATE [Suspect]
     Active Substance: MORPHINE SULFATE
     Indication: Pain
     Dosage: UNK
     Route: 065
  2. OBINUTUZUMAB [Suspect]
     Active Substance: OBINUTUZUMAB
     Indication: Diffuse large B-cell lymphoma
     Dosage: UNK
     Route: 065

REACTIONS (5)
  - Death [Fatal]
  - Pneumonia aspiration [Unknown]
  - Septic shock [Unknown]
  - Dysphagia [Unknown]
  - Pain [Unknown]
